FAERS Safety Report 8346555-6 (Version None)
Quarter: 2012Q2

REPORT INFORMATION
  Report Type: 
  Country: None (occurrence: None)
  Receive Date: 20120509
  Receipt Date: 20120427
  Transmission Date: 20120825
  Serious: Yes (Hospitalization)
  Sender: FDA-Public Use
  Company Number: PHEH2012US008139

PATIENT
  Sex: Male

DRUGS (3)
  1. CLOZAPINE [Suspect]
  2. CLOZARIL [Suspect]
     Dosage: UNK UKN, UNK
     Dates: start: 19931001
  3. CLOZARIL [Suspect]
     Dosage: UNK UKN, UNK
     Dates: start: 20120101

REACTIONS (3)
  - DRUG INEFFECTIVE [None]
  - AGGRESSION [None]
  - INSOMNIA [None]
